FAERS Safety Report 6680601-0 (Version None)
Quarter: 2010Q2

REPORT INFORMATION
  Report Type: 
  Country: None (occurrence: None)
  Receive Date: 20100414
  Receipt Date: 20100405
  Transmission Date: 20101027
  Serious: No
  Sender: FDA-Public Use
  Company Number: US-BIOGENIDEC-2010BI011057

PATIENT
  Age: 20 Year
  Sex: Female

DRUGS (1)
  1. AVONEX [Suspect]
     Indication: MULTIPLE SCLEROSIS
     Route: 030
     Dates: start: 20080101

REACTIONS (5)
  - GINGIVAL BLEEDING [None]
  - GINGIVAL DISCOLOURATION [None]
  - INJECTION SITE HAEMATOMA [None]
  - OROPHARYNGEAL BLISTERING [None]
  - PAIN IN EXTREMITY [None]
